FAERS Safety Report 8093126-5 (Version None)
Quarter: 2012Q1

REPORT INFORMATION
  Report Type: 
  Country: None (occurrence: None)
  Receive Date: 20120128
  Receipt Date: 20111005
  Transmission Date: 20120608
  Serious: No
  Sender: FDA-Public Use
  Company Number: US-ABBOTT-11P-163-0840880-00

PATIENT
  Age: 61 Year
  Sex: Female

DRUGS (5)
  1. HUMIRA [Suspect]
     Indication: PSORIASIS
     Dates: start: 20110501
  2. LORAZEPAM [Concomitant]
     Indication: ANXIETY
     Dates: start: 20090101
  3. LEXAPRO [Concomitant]
     Indication: DEPRESSION
     Dates: start: 19910101
  4. AMITRIPTYLINE HCL [Concomitant]
     Indication: DEPRESSION
     Dates: start: 20090101
  5. LISINOPRIL [Concomitant]
     Indication: HYPERTENSION
     Dates: start: 20090101

REACTIONS (2)
  - ARTHRALGIA [None]
  - PSORIASIS [None]
